FAERS Safety Report 5570624-7 (Version None)
Quarter: 2007Q4

REPORT INFORMATION
  Report Type: 
  Country: None (occurrence: None)
  Receive Date: 20071221
  Receipt Date: 20071207
  Transmission Date: 20080405
  Serious: Yes (Hospitalization)
  Sender: FDA-Public Use
  Company Number: GB-TEVA-154382ISR

PATIENT
  Sex: Female

DRUGS (2)
  1. AMITRIPTLINE HCL [Suspect]
  2. LINEZOLID [Suspect]

REACTIONS (6)
  - DISTURBANCE IN ATTENTION [None]
  - DRUG INTERACTION [None]
  - DYSPHASIA [None]
  - MOBILITY DECREASED [None]
  - NERVOUS SYSTEM DISORDER [None]
  - SEROTONIN SYNDROME [None]
